FAERS Safety Report 26013506 (Version 3)
Quarter: 2025Q4

REPORT INFORMATION
  Report Type: Spontaneous
  Country: JP (occurrence: JP)
  Receive Date: 20251107
  Receipt Date: 20251202
  Transmission Date: 20260118
  Serious: Yes (Hospitalization)
  Sender: BOEHRINGER INGELHEIM
  Company Number: JP-NBI-2025-BI-103874

PATIENT
  Age: 66 Year
  Sex: Male

DRUGS (2)
  1. JARDIANCE [Suspect]
     Active Substance: EMPAGLIFLOZIN
     Indication: Diabetes mellitus
  2. METFORMIN HYDROCHLORIDE [Suspect]
     Active Substance: METFORMIN HYDROCHLORIDE
     Indication: Diabetes mellitus

REACTIONS (9)
  - Hallucination [Recovered/Resolved]
  - Seizure [Unknown]
  - Hyperglycaemia [Unknown]
  - Irritability [Recovering/Resolving]
  - Therapeutic product effect incomplete [Unknown]
  - Patient elopement [Unknown]
  - Restlessness [Recovered/Resolved]
  - Agitation [Recovered/Resolved]
  - Road traffic accident [Unknown]
